FAERS Safety Report 20007098 (Version 1)
Quarter: 2021Q4

REPORT INFORMATION
  Report Type: Spontaneous
  Country: US (occurrence: US)
  Receive Date: 20211028
  Receipt Date: 20211028
  Transmission Date: 20220303
  Serious: Yes (Other)
  Sender: FDA-Public Use
  Company Number: 2021A782624

PATIENT
  Sex: Female
  Weight: 84.8 kg

DRUGS (3)
  1. BYDUREON BCISE [Suspect]
     Active Substance: EXENATIDE
     Indication: Diabetes mellitus
     Route: 058
  2. QUETIAPINE [Suspect]
     Active Substance: QUETIAPINE
     Indication: Insomnia
     Route: 048
  3. OMEPRAZOLE [Suspect]
     Active Substance: OMEPRAZOLE
     Indication: Gastrooesophageal reflux disease
     Route: 048

REACTIONS (9)
  - Neoplasm malignant [Unknown]
  - Benign ovarian tumour [Unknown]
  - Fall [Unknown]
  - Gastritis [Unknown]
  - Insomnia [Unknown]
  - Dyspnoea [Unknown]
  - Somnolence [Unknown]
  - Drug ineffective [Unknown]
  - Product use issue [Unknown]
